FAERS Safety Report 23383054 (Version 1)
Quarter: 2024Q1

REPORT INFORMATION
  Report Type: Spontaneous
  Country: US (occurrence: None)
  Receive Date: 20240108
  Receipt Date: 20240108
  Transmission Date: 20240410
  Serious: Yes (Disabling, Other)
  Sender: FDA-Public Use
  Company Number: None

PATIENT
  Age: 23 Year
  Sex: Male
  Weight: 99 kg

DRUGS (9)
  1. VENLAFAXINE [Suspect]
     Active Substance: VENLAFAXINE HYDROCHLORIDE
     Indication: Anxiety
     Dosage: FREQUENCY : TWICE A DAY;?
     Route: 048
     Dates: start: 20230314, end: 20230314
  2. VENLAFAXINE [Suspect]
     Active Substance: VENLAFAXINE HYDROCHLORIDE
     Indication: Attention deficit hyperactivity disorder
  3. VITAMIN D [Concomitant]
     Active Substance: VITAMIN D NOS
  4. VITAMIN C [Concomitant]
     Active Substance: ASCORBIC ACID
  5. ZINC [Concomitant]
     Active Substance: PYRITHIONE ZINC\ZINC\ZINC CHLORIDE
  6. Tribulus Terrestris (90% Saponins) [Concomitant]
  7. Horny Goat Weed with Maca Root [Concomitant]
  8. FENUGREEK SEED [Concomitant]
     Active Substance: FENUGREEK SEED
  9. Sunflower Lecithin [Concomitant]

REACTIONS (6)
  - Sexual dysfunction [None]
  - Erectile dysfunction [None]
  - Genital hypoaesthesia [None]
  - Libido decreased [None]
  - Anhedonia [None]
  - Anorgasmia [None]

NARRATIVE: CASE EVENT DATE: 20230314
